FAERS Safety Report 13607675 (Version 22)
Quarter: 2018Q1

REPORT INFORMATION
  Report Type: Report from Study
  Country: JP (occurrence: JP)
  Receive Date: 20170602
  Receipt Date: 20180209
  Transmission Date: 20180508
  Serious: Yes (Death, Hospitalization)
  Sender: FDA-Public Use
  Company Number: JP-ROCHE-1895276

PATIENT
  Age: 59 Year
  Sex: Male
  Weight: 63 kg

DRUGS (24)
  1. ATOVAQUONE. [Suspect]
     Active Substance: ATOVAQUONE
     Route: 065
     Dates: start: 20170801, end: 20170911
  2. MAGNESIUM OXIDE. [Concomitant]
     Active Substance: MAGNESIUM OXIDE
     Indication: CONSTIPATION
     Route: 065
     Dates: start: 20170202, end: 20170214
  3. NAB-PACLITAXEL [Suspect]
     Active Substance: PACLITAXEL
     Indication: LUNG SQUAMOUS CELL CARCINOMA STAGE IV
     Dosage: MOST RECENT DOSE 180 MG ON 07/FEB/2017 PRIOR TO DRUG RELATED LIVER INJURY.?NAB-PACLITAXEL 100 MILLIG
     Route: 042
     Dates: start: 20170131
  4. LANSOPRAZOLE. [Concomitant]
     Active Substance: LANSOPRAZOLE
     Indication: GASTRITIS
     Route: 065
     Dates: start: 20170614, end: 20170628
  5. FAMOTIDINE. [Concomitant]
     Active Substance: FAMOTIDINE
     Route: 065
     Dates: start: 20170201, end: 20170216
  6. DEXTROMETHORPHAN HYDROBROMIDE. [Concomitant]
     Active Substance: DEXTROMETHORPHAN HYDROBROMIDE
     Indication: LUNG NEOPLASM MALIGNANT
  7. BAKTAR [Concomitant]
     Active Substance: SULFAMETHOXAZOLE\TRIMETHOPRIM
     Indication: INFECTION
     Route: 065
     Dates: start: 20171003, end: 20171104
  8. CARBOPLATIN. [Suspect]
     Active Substance: CARBOPLATIN
     Indication: LUNG SQUAMOUS CELL CARCINOMA STAGE IV
     Dosage: MOST RECENT DOSE ON 31/JAN/2017, 790 MG PRIOR TO DRUG RELATED LIVER INJURY?AREA UNDER THE CONCENTRAT
     Route: 042
     Dates: start: 20170131
  9. DEXTROMETHORPHAN HYDROBROMIDE. [Concomitant]
     Active Substance: DEXTROMETHORPHAN HYDROBROMIDE
     Indication: COUGH
     Route: 065
     Dates: start: 20170112, end: 20170214
  10. BACTER [Concomitant]
     Indication: INFECTION
     Route: 065
     Dates: start: 20171004
  11. RISEDRONATE SODIUM. [Suspect]
     Active Substance: RISEDRONATE SODIUM
     Indication: OSTEOPOROSIS
     Route: 065
     Dates: start: 20170615, end: 20170720
  12. RISEDRONATE SODIUM. [Suspect]
     Active Substance: RISEDRONATE SODIUM
     Indication: INFECTION
     Route: 065
     Dates: start: 20170801, end: 20170911
  13. MAGNESIUM OXIDE. [Concomitant]
     Active Substance: MAGNESIUM OXIDE
     Route: 065
     Dates: start: 20170809, end: 20170829
  14. PALONOSETRON HYDROCHLORIDE. [Concomitant]
     Active Substance: PALONOSETRON HYDROCHLORIDE
     Indication: NAUSEA
     Route: 065
     Dates: start: 20170131, end: 20170131
  15. ATOVAQUONE. [Suspect]
     Active Substance: ATOVAQUONE
     Indication: INFECTION
     Route: 065
     Dates: start: 20170531, end: 20170720
  16. APREPITANT. [Concomitant]
     Active Substance: APREPITANT
     Route: 065
     Dates: start: 20170323
  17. VONOPRAZAN FUMARATE [Concomitant]
     Active Substance: VONOPRAZAN FUMURATE
     Indication: GASTRITIS
     Route: 065
     Dates: start: 20171012, end: 20171104
  18. ATEZOLIZUMAB. [Suspect]
     Active Substance: ATEZOLIZUMAB
     Indication: LUNG SQUAMOUS CELL CARCINOMA STAGE IV
     Dosage: MOST RECENT DOSE ON 31/JAN/2017 PRIOR TO DRUG RELATED LIVER INJURY.?MOST RECENT DOSE ON 27/APR/2017
     Route: 042
     Dates: start: 20170131
  19. MAGNESIUM OXIDE. [Concomitant]
     Active Substance: MAGNESIUM OXIDE
     Route: 065
     Dates: start: 20170529, end: 20170706
  20. LOXOPROFEN SODIUM HYDRATE [Concomitant]
     Active Substance: LOXOPROFEN SODIUM DIHYDRATE
     Route: 065
     Dates: start: 20170215, end: 20170216
  21. SENNOSIDE [Concomitant]
     Active Substance: SENNOSIDES
     Indication: CONSTIPATION
     Route: 065
     Dates: start: 20170808, end: 20170809
  22. LANSOPRAZOLE. [Concomitant]
     Active Substance: LANSOPRAZOLE
     Route: 065
     Dates: start: 20170801, end: 20171012
  23. APREPITANT. [Concomitant]
     Active Substance: APREPITANT
     Indication: NAUSEA
     Route: 065
     Dates: start: 20170131, end: 20170203
  24. CEFPODOXIME [Concomitant]
     Active Substance: CEFPODOXIME
     Indication: INFECTION
     Route: 065
     Dates: start: 20171004, end: 20171104

REACTIONS (2)
  - Drug-induced liver injury [Recovered/Resolved]
  - Hepatic function abnormal [Fatal]

NARRATIVE: CASE EVENT DATE: 20170207
